FAERS Safety Report 5765022-7 (Version None)
Quarter: 2008Q2

REPORT INFORMATION
  Report Type: 
  Country: None (occurrence: None)
  Receive Date: 20080611
  Receipt Date: 20080529
  Transmission Date: 20081010
  Serious: Yes (Hospitalization)
  Sender: FDA-Public Use
  Company Number: US-ELI_LILLY_AND_COMPANY-US200806000180

PATIENT
  Age: 64 Year
  Sex: Female

DRUGS (5)
  1. HUMALOG [Suspect]
     Dates: start: 20070901
  2. HUMALOG [Suspect]
     Dates: start: 20070901
  3. HUMALOG [Suspect]
  4. HUMALOG [Suspect]
  5. LASIX [Concomitant]
     Dates: start: 20000101

REACTIONS (5)
  - ARTHRALGIA [None]
  - CARDIAC FAILURE CONGESTIVE [None]
  - MALAISE [None]
  - MEMORY IMPAIRMENT [None]
  - PAIN [None]
